FAERS Safety Report 8958806 (Version 3)
Quarter: 2015Q2

REPORT INFORMATION
  Report Type: Spontaneous
  Country: US (occurrence: US)
  Receive Date: 20121212
  Receipt Date: 20150513
  Transmission Date: 20150821
  Serious: Yes (Death, Hospitalization)
  Sender: FDA-Public Use
  Company Number: PHHY2012US114110

PATIENT
  Age: 64 Year
  Sex: Female

DRUGS (4)
  1. HYDROXYCHLOROQUINE [Suspect]
     Active Substance: HYDROXYCHLOROQUINE
     Dosage: 200 MG, QD
     Route: 048
  2. HYDROXYCHLOROQUINE [Suspect]
     Active Substance: HYDROXYCHLOROQUINE
     Indication: RHEUMATOID ARTHRITIS
     Dosage: 400 MG, QD
     Route: 048
  3. PREDNISONE. [Concomitant]
     Active Substance: PREDNISONE
     Indication: POLYMYOSITIS
     Dosage: 60 MG, QD
     Route: 065
  4. PREDNISONE. [Concomitant]
     Active Substance: PREDNISONE
     Dosage: 20 MG, QD
     Route: 065

REACTIONS (10)
  - Oedema peripheral [Unknown]
  - Cardiomyopathy [Fatal]
  - Atrial fibrillation [Unknown]
  - Myopathy [Unknown]
  - Sinus node dysfunction [Unknown]
  - General physical health deterioration [Fatal]
  - Respiratory failure [Fatal]
  - Cardiomegaly [Fatal]
  - Dyspnoea [Fatal]
  - Muscular weakness [Unknown]
